FAERS Safety Report 23924687 (Version 2)
Quarter: 2025Q1

REPORT INFORMATION
  Report Type: Report from Study
  Country: IT (occurrence: IT)
  Receive Date: 20240531
  Receipt Date: 20250324
  Transmission Date: 20250409
  Serious: Yes (Hospitalization, Other)
  Sender: SERVIER
  Company Number: None

PATIENT

DRUGS (12)
  1. PEGASPARGASE [Suspect]
     Active Substance: PEGASPARGASE
     Indication: B-cell type acute leukaemia
     Dosage: 2985 IU, QD
     Route: 042
     Dates: start: 20240318, end: 20240318
  2. VINCRISTINE [Suspect]
     Active Substance: VINCRISTINE
     Indication: B-cell type acute leukaemia
     Dosage: 1.75 MG, QD (ON DAYS 18, 25/03, 02, 08/04/2024)
     Route: 042
     Dates: start: 20240318, end: 20240408
  3. ADRIABLASTINA [Suspect]
     Active Substance: DOXORUBICIN
     Indication: B-cell type acute leukaemia
     Dosage: 35.5 MG, QD
     Route: 042
     Dates: start: 20240318, end: 20240318
  4. DOXORUBICIN HYDROCHLORIDE [Suspect]
     Active Substance: DOXORUBICIN HYDROCHLORIDE
     Indication: B-cell type acute leukaemia
     Dosage: 35, 80 MG/DAY ON 03/25, 04/02/2024 14.46 MG/DAY ON 04/08/2024
     Route: 042
     Dates: start: 20240325, end: 20240408
  5. DOXORUBICIN HYDROCHLORIDE [Suspect]
     Active Substance: DOXORUBICIN HYDROCHLORIDE
     Dosage: 21.34 MG/DAY
     Route: 042
     Dates: start: 20240408, end: 20240408
  6. CYCLOPHOSPHAMIDE [Suspect]
     Active Substance: CYCLOPHOSPHAMIDE
     Indication: B-cell type acute leukaemia
     Dosage: 1190 MG, QD
     Route: 042
     Dates: start: 20240426, end: 20240426
  7. CYTARABINE [Suspect]
     Active Substance: CYTARABINE
     Indication: B-cell type acute leukaemia
     Dosage: 89.5 MG, QD, ON DAYS 29/04, 02/05/2024 AND 06, 09/05.2024
     Route: 042
     Dates: start: 20240429, end: 20240509
  8. DEXAMETHASONE [Concomitant]
     Active Substance: DEXAMETHASONE
     Indication: B-cell type acute leukaemia
     Dosage: 2 DF (TABLETS 2 MG), TID
     Route: 048
     Dates: start: 20240311, end: 20240331
  9. DEXAMETHASONE [Concomitant]
     Active Substance: DEXAMETHASONE
     Dosage: 1 DF (TABLET 2 MG), TID
     Route: 048
     Dates: start: 20240401, end: 20240403
  10. DEXAMETHASONE [Concomitant]
     Active Substance: DEXAMETHASONE
     Dosage: 0.5 DF (TABLET 2 MG), TID
     Route: 048
     Dates: start: 20240404, end: 20240406
  11. DEXAMETHASONE [Concomitant]
     Active Substance: DEXAMETHASONE
     Dosage: 0.5 DF (TABLET 2 MG), BID
     Route: 048
     Dates: start: 20240407, end: 20240409
  12. ESOMEPRAZOLE [Concomitant]
     Active Substance: ESOMEPRAZOLE
     Indication: Prophylaxis against gastrointestinal ulcer
     Dosage: 40 MG, QD
     Route: 048
     Dates: start: 20240311, end: 20240411

REACTIONS (4)
  - Febrile neutropenia [Recovered/Resolved]
  - Pancytopenia [Recovered/Resolved]
  - Alanine aminotransferase increased [Recovering/Resolving]
  - Stomatitis [Recovered/Resolved]

NARRATIVE: CASE EVENT DATE: 20240408
